FAERS Safety Report 17981268 (Version 2)
Quarter: 2020Q4

REPORT INFORMATION
  Report Type: Report from Study
  Country: US (occurrence: US)
  Receive Date: 20200705
  Receipt Date: 20201101
  Transmission Date: 20210113
  Serious: Yes (Death, Life-Threatening, Other)
  Sender: FDA-Public Use
  Company Number: NVSC2020US078433

PATIENT
  Age: 76 Year
  Sex: Male

DRUGS (3)
  1. CYCLOPHOSPHAMIDE. [Concomitant]
     Active Substance: CYCLOPHOSPHAMIDE
     Indication: PRODUCT USED FOR UNKNOWN INDICATION
     Dosage: UNK
     Route: 065
  2. KYMRIAH [Suspect]
     Active Substance: TISAGENLECLEUCEL
     Indication: DIFFUSE LARGE B-CELL LYMPHOMA
     Dosage: UNK
     Route: 065
     Dates: start: 20190820
  3. FLUDARABINE [Concomitant]
     Active Substance: FLUDARABINE PHOSPHATE
     Indication: PRODUCT USED FOR UNKNOWN INDICATION
     Dosage: UNK
     Route: 065

REACTIONS (19)
  - Neutrophil count decreased [Recovered/Resolved]
  - Candida infection [Fatal]
  - Clostridium difficile infection [Unknown]
  - Thrombocytopenia [Unknown]
  - Pyrexia [Recovered/Resolved]
  - Cytomegalovirus infection [Unknown]
  - Paraparesis [Unknown]
  - Haemoglobin decreased [Unknown]
  - Hemiparesis [Unknown]
  - Neurotoxicity [Recovered/Resolved]
  - Haematocrit decreased [Unknown]
  - Motor dysfunction [Unknown]
  - White blood cell count increased [Unknown]
  - Diffuse large B-cell lymphoma recurrent [Fatal]
  - Klebsiella infection [Unknown]
  - Cytokine release syndrome [Recovered/Resolved]
  - Hypoxia [Recovered/Resolved]
  - Cytopenia [Recovered/Resolved]
  - Hypogammaglobulinaemia [Unknown]
